FAERS Safety Report 11914154 (Version 2)
Quarter: 2016Q1

REPORT INFORMATION
  Report Type: Spontaneous
  Country: JP (occurrence: JP)
  Receive Date: 20160113
  Receipt Date: 20160216
  Transmission Date: 20160526
  Serious: Yes (Hospitalization)
  Sender: FDA-Public Use
  Company Number: JP-PFIZER INC-2016007208

PATIENT
  Age: 57 Year
  Sex: Male

DRUGS (6)
  1. LYRICA [Suspect]
     Active Substance: PREGABALIN
     Indication: INTERVERTEBRAL DISC PROTRUSION
     Dosage: 75 MG, 2X/DAY
     Route: 048
     Dates: start: 20150715, end: 20151204
  2. LYRICA [Suspect]
     Active Substance: PREGABALIN
     Dosage: 150 MG, 2X/DAY
     Route: 048
     Dates: start: 20151205, end: 20160105
  3. PARIET [Concomitant]
     Active Substance: RABEPRAZOLE SODIUM
     Dosage: 10 MG, 1X/DAY
     Route: 048
     Dates: start: 20150715, end: 20160118
  4. TAMSULOSIN [Concomitant]
     Active Substance: TAMSULOSIN
     Dosage: 0.2 MG, 1X/DAY
     Route: 048
     Dates: start: 20150715, end: 20160118
  5. ROXONIN [Concomitant]
     Dosage: 60 MG, 2X/DAY
     Route: 048
     Dates: start: 20150617, end: 20151217
  6. TRAMAL [Concomitant]
     Active Substance: TRAMADOL
     Dosage: 25 MG, 4X/DAY
     Route: 048
     Dates: start: 20150630, end: 20160118

REACTIONS (2)
  - Condition aggravated [Not Recovered/Not Resolved]
  - Jaundice [Not Recovered/Not Resolved]

NARRATIVE: CASE EVENT DATE: 20151228
